FAERS Safety Report 8122321-1 (Version None)
Quarter: 2012Q1

REPORT INFORMATION
  Report Type: 
  Country: None (occurrence: None)
  Receive Date: 20120208
  Receipt Date: 20120202
  Transmission Date: 20120608
  Serious: Yes (Hospitalization, Other)
  Sender: FDA-Public Use
  Company Number: JP-JNJFOC-20120202915

PATIENT
  Age: 67 Year
  Sex: Male

DRUGS (3)
  1. GALANTAMINE HYDROBROMIDE [Suspect]
     Indication: DEMENTIA ALZHEIMER'S TYPE
     Route: 048
     Dates: start: 20120126, end: 20120127
  2. ANTI-DIABETIC MEDICATION [Suspect]
     Indication: DIABETES MELLITUS
     Route: 048
  3. DONEPEZIL HCL [Concomitant]
     Indication: DEMENTIA ALZHEIMER'S TYPE
     Route: 065
     Dates: end: 20120126

REACTIONS (4)
  - ABASIA [None]
  - MALAISE [None]
  - MICTURITION DISORDER [None]
  - HYPOAESTHESIA [None]
